FAERS Safety Report 6273465-0 (Version None)
Quarter: 2009Q3

REPORT INFORMATION
  Report Type: 
  Country: None (occurrence: None)
  Receive Date: 20090720
  Receipt Date: 20090713
  Transmission Date: 20100115
  Serious: Yes (Hospitalization, Other)
  Sender: FDA-Public Use
  Company Number: PHHY2009ES28604

PATIENT
  Age: 70 Year
  Sex: Male

DRUGS (1)
  1. CERTICAN [Suspect]
     Indication: RENAL TRANSPLANT
     Dosage: 1.5 MG, BID
     Route: 048
     Dates: end: 20090615

REACTIONS (3)
  - DRUG LEVEL INCREASED [None]
  - EOSINOPHIL COUNT INCREASED [None]
  - PNEUMONIA [None]
